FAERS Safety Report 5460409-4 (Version None)
Quarter: 2007Q3

REPORT INFORMATION
  Report Type: 
  Country: None (occurrence: None)
  Receive Date: 20070919
  Receipt Date: 20070712
  Transmission Date: 20080115
  Serious: Yes (Other)
  Sender: FDA-Public Use
  Company Number: US-ASTRAZENECA-2007UW16441

PATIENT
  Age: 17 Year
  Sex: Female

DRUGS (4)
  1. SEROQUEL [Suspect]
     Indication: AFFECTIVE DISORDER
     Route: 048
     Dates: start: 20060501
  2. ROZEREM [Concomitant]
     Dates: start: 20060501
  3. MIRTAZAPINE [Concomitant]
     Dates: start: 20060501
  4. METFORMIN HCL [Concomitant]
     Indication: ENDOCRINE DISORDER
     Dates: end: 20060101

REACTIONS (3)
  - IRRITABILITY [None]
  - MOOD ALTERED [None]
  - SUICIDAL IDEATION [None]
